FAERS Safety Report 25670332 (Version 1)
Quarter: 2025Q3

REPORT INFORMATION
  Report Type: Spontaneous
  Country: US (occurrence: US)
  Receive Date: 20250812
  Receipt Date: 20250812
  Transmission Date: 20251021
  Serious: Yes (Other)
  Sender: BRISTOL-MYERS SQUIBB COMPANY
  Company Number: US-BRISTOL-MYERS SQUIBB COMPANY-2025-111782

PATIENT
  Sex: Female

DRUGS (1)
  1. ELIQUIS [Suspect]
     Active Substance: APIXABAN
     Indication: Product used for unknown indication
     Dates: start: 2022

REACTIONS (5)
  - Dizziness [Unknown]
  - Loss of consciousness [Unknown]
  - Haemorrhage [Unknown]
  - Conduction disorder [Unknown]
  - Atrial fibrillation [Recovered/Resolved]
